FAERS Safety Report 5154811-8 (Version None)
Quarter: 2006Q4

REPORT INFORMATION
  Report Type: 
  Country: None (occurrence: None)
  Receive Date: 20061121
  Receipt Date: 20061109
  Transmission Date: 20070319
  Serious: Yes (Other)
  Sender: FDA-Public Use
  Company Number: PHBS2006JP17712

PATIENT

DRUGS (1)
  1. DIOVAN [Suspect]
     Dosage: 40MG/DAY
     Route: 048

REACTIONS (1)
  - HEPATIC CIRRHOSIS [None]
